FAERS Safety Report 8371336 (Version 2)
Quarter: 2013Q1

REPORT INFORMATION
  Report Type: Report from Study
  Country: US (occurrence: US)
  Receive Date: 20120129
  Receipt Date: 20130131
  Transmission Date: 20140127
  Serious: No
  Sender: FDA-Public Use
  Company Number: US-ABBOTT-11P-163-0881966-00

PATIENT
  Age: 55 Year
  Sex: Male

DRUGS (20)
  1. HUMIRA [Suspect]
     Indication: RHEUMATOID ARTHRITIS
     Dosage: INITIAL DOSE
     Dates: start: 20111115
  2. AMBIEN [Concomitant]
     Indication: INSOMNIA
     Dosage: ONE TO TWO TABLETS DAILY
  3. METHOTREXATE [Concomitant]
     Indication: PRODUCT USED FOR UNKNOWN INDICATION
     Dosage: WEEKLY
  4. CELEBREX [Concomitant]
     Indication: RHEUMATOID ARTHRITIS
  5. FOLIC ACID [Concomitant]
     Indication: PRODUCT USED FOR UNKNOWN INDICATION
  6. AMLODIPINE [Concomitant]
     Indication: HYPERTENSION
  7. LISINOPRIL [Concomitant]
     Indication: HYPERTENSION
  8. DOXAZOSIN [Concomitant]
     Indication: HYPERTENSION
     Dosage: 6 MG DAILY
  9. VITAMINS [Concomitant]
     Indication: PRODUCT USED FOR UNKNOWN INDICATION
     Dosage: DAILY
  10. TRAMADOL [Concomitant]
     Indication: PAIN
  11. CLONAZEPAM [Concomitant]
     Indication: ANXIETY
  12. PRILOSEC [Concomitant]
     Indication: DYSPEPSIA
  13. BABY ASPIRIN [Concomitant]
     Indication: ANTICOAGULANT THERAPY
  14. COQ10 [Concomitant]
     Indication: PRODUCT USED FOR UNKNOWN INDICATION
  15. CHROMIUM PICOLINATE [Concomitant]
     Indication: PRODUCT USED FOR UNKNOWN INDICATION
  16. VITAMIN D [Concomitant]
     Indication: PRODUCT USED FOR UNKNOWN INDICATION
  17. WELLBUTRIN [Concomitant]
     Indication: DEPRESSION
  18. WELLBUTRIN [Concomitant]
     Indication: ANXIETY
  19. VOLTAREN GEL [Concomitant]
     Indication: JOINT SWELLING
  20. CLONAZEPAM [Concomitant]
     Indication: ANXIETY

REACTIONS (10)
  - Dizziness [Not Recovered/Not Resolved]
  - Nasal congestion [Not Recovered/Not Resolved]
  - Nausea [Not Recovered/Not Resolved]
  - Cough [Not Recovered/Not Resolved]
  - Rhinitis seasonal [Not Recovered/Not Resolved]
  - Malaise [Not Recovered/Not Resolved]
  - Dizziness [Not Recovered/Not Resolved]
  - Retching [Not Recovered/Not Resolved]
  - Inflammation [Not Recovered/Not Resolved]
  - Pain [Not Recovered/Not Resolved]
